FAERS Safety Report 6055138-2 (Version None)
Quarter: 2009Q1

REPORT INFORMATION
  Report Type: 
  Country: None (occurrence: None)
  Receive Date: 20090128
  Receipt Date: 20090115
  Transmission Date: 20090719
  Serious: Yes (Life-Threatening, Hospitalization, Other)
  Sender: FDA-Public Use
  Company Number: ES-ELI_LILLY_AND_COMPANY-ES200812002704

PATIENT
  Age: 29 Year
  Sex: Female
  Weight: 69 kg

DRUGS (4)
  1. ZYPREXA [Suspect]
     Indication: SCHIZOID PERSONALITY DISORDER
     Dosage: 5 MG, DAILY (1/D)
     Route: 065
  2. ZYPREXA [Interacting]
     Dosage: 15 D/F, UNKNOWN
     Route: 065
  3. COCAINE [Interacting]
  4. OPIOIDS [Concomitant]
     Dosage: UNK, UNKNOWN
     Route: 065

REACTIONS (5)
  - CARDIO-RESPIRATORY ARREST [None]
  - DRUG INTERACTION [None]
  - HYPERGLYCAEMIA [None]
  - OVERDOSE [None]
  - SUICIDE ATTEMPT [None]
